FAERS Safety Report 5647028-1 (Version None)
Quarter: 2008Q1

REPORT INFORMATION
  Report Type: 
  Country: None (occurrence: None)
  Receive Date: 20080303
  Receipt Date: 20080227
  Transmission Date: 20080703
  Serious: Yes (Other)
  Sender: FDA-Public Use
  Company Number: B0510457A

PATIENT
  Age: 66 Year
  Sex: Male

DRUGS (2)
  1. AVODART [Suspect]
     Dosage: .5MG PER DAY
     Route: 048
     Dates: start: 20071201
  2. TRIMEBUTINE [Concomitant]
     Indication: ILL-DEFINED DISORDER

REACTIONS (2)
  - PAIN IN EXTREMITY [None]
  - PARALYSIS [None]
